FAERS Safety Report 24333305 (Version 1)
Quarter: 2024Q3

REPORT INFORMATION
  Report Type: Spontaneous
  Country: US (occurrence: None)
  Receive Date: 20240917
  Receipt Date: 20240917
  Transmission Date: 20241016
  Serious: Yes (Other)
  Sender: Public
  Company Number: None

PATIENT
  Age: 49 Year
  Sex: Female
  Weight: 97.2 kg

DRUGS (5)
  1. WEGOVY [Suspect]
     Active Substance: SEMAGLUTIDE
     Indication: Obesity
     Dosage: OTHER QUANTITY : 1 INJECTION(S);?OTHER FREQUENCY : WEEKLY;?OTHER ROUTE : SUBCUTANEOUS INJECTION;?
     Route: 058
     Dates: start: 20240823, end: 20240917
  2. VALSARTAN [Concomitant]
     Active Substance: VALSARTAN
  3. HYDROCHLOROTHIAZIDE [Concomitant]
     Active Substance: HYDROCHLOROTHIAZIDE
  4. VITAMINS [Concomitant]
     Active Substance: VITAMINS
  5. VITAMIN E [Concomitant]
     Active Substance: .ALPHA.-TOCOPHEROL

REACTIONS (2)
  - Oropharyngeal pain [None]
  - Lymphadenopathy [None]

NARRATIVE: CASE EVENT DATE: 20240917
